FAERS Safety Report 9299879 (Version 1)
Quarter: 2012Q4

REPORT INFORMATION
  Report Type: Spontaneous
  Country: DE (occurrence: None)
  Receive Date: 20121114
  Receipt Date: 20121114
  Transmission Date: 20130627
  Serious: Yes (Other)
  Sender: FDA-Public Use
  Company Number: 20120339908

PATIENT
  Age: 9 Year
  Sex: Female

DRUGS (1)
  1. HIZENTRA (IMMUNOGLOBULIN HUMAN NORMAL) [Suspect]
     Indication: AGAMMAGLOBULINAEMIA
     Dosage: 2X/WEEK
     Route: 058
     Dates: start: 20121008, end: 20121009

REACTIONS (2)
  - Injection site necrosis [None]
  - Acquired epidermolysis bullosa [None]
